FAERS Safety Report 4546274-8 (Version None)
Quarter: 2005Q1

REPORT INFORMATION
  Report Type: 
  Country: None (occurrence: None)
  Receive Date: 20050106
  Receipt Date: 20041222
  Transmission Date: 20050727
  Serious: Yes (Hospitalization)
  Sender: FDA-Public Use
  Company Number: AU-MERCK-0501AUS00025

PATIENT
  Sex: Male

DRUGS (2)
  1. ZOCOR [Suspect]
     Route: 048
     Dates: start: 20011201
  2. ASPIRIN [Concomitant]
     Route: 065

REACTIONS (3)
  - CIRCULATORY COLLAPSE [None]
  - DIVERTICULITIS [None]
  - DIZZINESS [None]
